FAERS Safety Report 4530781-8 (Version None)
Quarter: 2004Q4

REPORT INFORMATION
  Report Type: 
  Country: None (occurrence: None)
  Receive Date: 20041216
  Receipt Date: 20041124
  Transmission Date: 20050328
  Serious: Yes (Hospitalization)
  Sender: FDA-Public Use
  Company Number: JP_041004923

PATIENT
  Age: 71 Year
  Sex: Female
  Weight: 57 kg

DRUGS (6)
  1. EVISTA [Suspect]
     Indication: OSTEOPOROSIS POSTMENOPAUSAL
     Dosage: 60 MG/ 1 DAY
     Dates: start: 20040609, end: 20040808
  2. JEOASE (PROTEASE) [Concomitant]
  3. HYPEN (ETODOLAC) [Concomitant]
  4. GASLON (IRSOGLADINE MALEATE) [Concomitant]
  5. PRAVASTATIN [Concomitant]
  6. SALMOTONIN (CALCITONIN, SALMON) [Concomitant]

REACTIONS (4)
  - ERYTHEMA MULTIFORME [None]
  - FACE OEDEMA [None]
  - RASH GENERALISED [None]
  - SKIN TEST POSITIVE [None]
